FAERS Safety Report 25037333 (Version 2)
Quarter: 2025Q1

REPORT INFORMATION
  Report Type: Spontaneous
  Country: US (occurrence: US)
  Receive Date: 20250304
  Receipt Date: 20250306
  Transmission Date: 20250409
  Serious: No
  Sender: ELI LILLY AND COMPANY
  Company Number: US-ELI_LILLY_AND_COMPANY-US202503001906

PATIENT
  Age: 63 Year
  Sex: Male

DRUGS (1)
  1. HUMULIN 70/30 [Suspect]
     Active Substance: INSULIN HUMAN
     Indication: Product used for unknown indication
     Dosage: 70 U, BID
     Route: 065
     Dates: start: 2005

REACTIONS (4)
  - Abdominal discomfort [Unknown]
  - Back pain [Unknown]
  - Poor quality sleep [Unknown]
  - Hepatic pain [Unknown]
